FAERS Safety Report 7466224-4 (Version None)
Quarter: 2011Q2

REPORT INFORMATION
  Report Type: 
  Country: None (occurrence: None)
  Receive Date: 20110509
  Receipt Date: 20101220
  Transmission Date: 20111010
  Serious: No
  Sender: FDA-Public Use
  Company Number: US-SANOFI-AVENTIS-2010SA077946

PATIENT
  Age: 63 Year
  Sex: Female

DRUGS (2)
  1. APIDRA [Suspect]
     Dosage: DOSE:8 UNIT(S)
     Route: 065
     Dates: start: 20101001
  2. LANTUS [Suspect]
     Dates: start: 20101001

REACTIONS (3)
  - PRODUCT QUALITY ISSUE [None]
  - DRUG DOSE OMISSION [None]
  - FEELING ABNORMAL [None]
